FAERS Safety Report 14893849 (Version 3)
Quarter: 2018Q2

REPORT INFORMATION
  Report Type: Spontaneous
  Country: ES (occurrence: ES)
  Receive Date: 20180514
  Receipt Date: 20180530
  Transmission Date: 20180711
  Serious: Yes (Disabling)
  Sender: FDA-Public Use
  Company Number: ES-PFIZER INC-2018193474

PATIENT
  Age: 40 Year
  Sex: Female

DRUGS (14)
  1. IDEOS [Concomitant]
     Active Substance: CALCIUM CARBONATE\CHOLECALCIFEROL
     Indication: LUNG DISORDER
     Dosage: 2 DF, DAILY
     Dates: start: 20110701
  2. IDEOS [Concomitant]
     Active Substance: CALCIUM CARBONATE\CHOLECALCIFEROL
     Indication: POLYMYOSITIS
  3. BONVIVA [Concomitant]
     Active Substance: IBANDRONATE SODIUM
     Indication: LUNG DISORDER
     Dosage: 150 MG, 1X/DAY
     Dates: start: 20110701
  4. CICLOSPORIN [Concomitant]
     Active Substance: CYCLOSPORINE
     Indication: POLYMYOSITIS
  5. URBASON /00049601/ [Suspect]
     Active Substance: METHYLPREDNISOLONE
     Indication: ANTISYNTHETASE SYNDROME
  6. ESCITALOPRAM [Concomitant]
     Active Substance: ESCITALOPRAM OXALATE
     Indication: DEPRESSION
     Dosage: 10 MG, 1X/DAY
     Dates: start: 20110401
  7. LEVOFLOXACIN. [Suspect]
     Active Substance: LEVOFLOXACIN
     Indication: UPPER RESPIRATORY TRACT INFECTION
     Dosage: 500 MG, 2X/DAY (EVERY 12 HOURS)
  8. CICLOSPORIN [Concomitant]
     Active Substance: CYCLOSPORINE
     Indication: LUNG DISORDER
     Dosage: 100 MG, 2X/DAY (EVERY 12 HOURS)
     Dates: start: 20110701
  9. CICLOSPORIN [Concomitant]
     Active Substance: CYCLOSPORINE
     Indication: ANTISYNTHETASE SYNDROME
  10. URBASON /00049601/ [Suspect]
     Active Substance: METHYLPREDNISOLONE
     Indication: POLYMYOSITIS
  11. IDEOS [Concomitant]
     Active Substance: CALCIUM CARBONATE\CHOLECALCIFEROL
     Indication: ANTISYNTHETASE SYNDROME
  12. BONVIVA [Concomitant]
     Active Substance: IBANDRONATE SODIUM
     Indication: ANTISYNTHETASE SYNDROME
  13. BONVIVA [Concomitant]
     Active Substance: IBANDRONATE SODIUM
     Indication: POLYMYOSITIS
  14. URBASON /00049601/ [Suspect]
     Active Substance: METHYLPREDNISOLONE
     Indication: LUNG DISORDER
     Dosage: 20 MG, 1X/DAY
     Dates: start: 20110701

REACTIONS (1)
  - Tendon rupture [Recovering/Resolving]
